FAERS Safety Report 4851893-5 (Version None)
Quarter: 2005Q4

REPORT INFORMATION
  Report Type: 
  Country: None (occurrence: None)
  Receive Date: 20051209
  Receipt Date: 20051128
  Transmission Date: 20060501
  Serious: Yes (Life-Threatening, Other)
  Sender: FDA-Public Use
  Company Number: GBR-2005-0001903

PATIENT
  Age: 73 Year
  Sex: Male

DRUGS (1)
  1. OXYNORM CONCENTRATE 10 MG/ ML(OXYCODONE HYDROCHLORIDE) ORAL SOLUTION [Suspect]
     Indication: DRUG USE FOR UNKNOWN INDICATION
     Dosage: 20 ML, UNK, ORAL
     Route: 048
     Dates: start: 20050901

REACTIONS (6)
  - ACCIDENTAL OVERDOSE [None]
  - BLOOD PRESSURE DECREASED [None]
  - INCORRECT DOSE ADMINISTERED [None]
  - LABORATORY TEST ABNORMAL [None]
  - MIOSIS [None]
  - SEDATION [None]
